FAERS Safety Report 15694843 (Version 3)
Quarter: 2021Q2

REPORT INFORMATION
  Report Type: Spontaneous
  Country: NL (occurrence: NL)
  Receive Date: 20181206
  Receipt Date: 20210604
  Transmission Date: 20210716
  Serious: Yes (Hospitalization)
  Sender: FDA-Public Use
  Company Number: NL-PFIZER INC-2018500980

PATIENT
  Age: 75 Year
  Sex: Male

DRUGS (5)
  1. OXALIPLATIN. [Suspect]
     Active Substance: OXALIPLATIN
     Indication: GASTRIC CANCER
     Dosage: 109MG, EVERY 3 WEEKS
     Route: 042
     Dates: start: 20130828, end: 20131211
  2. TRASTUZUMAB. [Suspect]
     Active Substance: TRASTUZUMAB
     Indication: GASTRIC CANCER
     Dosage: 400MG, EVERY 3 WEEKS
     Route: 042
     Dates: start: 20130828, end: 20180725
  3. DOCETAXEL. [Suspect]
     Active Substance: DOCETAXEL
     Indication: GASTRIC CANCER
     Dosage: 94MG, EVERY 3 WEEKS
     Route: 042
     Dates: start: 20130828, end: 20131211
  4. CAPECITABINE. [Suspect]
     Active Substance: CAPECITABINE
     Indication: GASTRIC CANCER
     Dosage: 3300 MG, 2X/DAY
     Route: 048
     Dates: start: 20130828, end: 20140219
  5. BEVACIZUMAB. [Concomitant]
     Active Substance: BEVACIZUMAB
     Indication: GASTRIC CANCER
     Dosage: 503 MG, EVERY 3 WEEKS
     Route: 042
     Dates: start: 20130828, end: 20180725

REACTIONS (1)
  - Malaise [Unknown]

NARRATIVE: CASE EVENT DATE: 20180810
